FAERS Safety Report 9110748 (Version 1)
Quarter: 2013Q1

REPORT INFORMATION
  Report Type: Spontaneous
  Country: US (occurrence: US)
  Receive Date: 20130219
  Receipt Date: 20130219
  Transmission Date: 20140127
  Serious: No
  Sender: FDA-Public Use
  Company Number: US-BRISTOL-MYERS SQUIBB COMPANY-16559890

PATIENT
  Age: 56 Year
  Sex: Female

DRUGS (10)
  1. ORENCIA [Suspect]
     Indication: RHEUMATOID ARTHRITIS
     Dosage: VIAL.FORMULATION-ORENCIA SOLN.LAST INF-22MAR12
     Route: 042
     Dates: start: 20120426
  2. FOLIC ACID [Concomitant]
     Dosage: 1TAB.
  3. ALBUTEROL SULFATE [Concomitant]
     Dosage: 1DF:0.63MG/3ML AS DIRECTED
     Route: 055
  4. SINGULAIR [Concomitant]
     Dosage: 1TAB IN EVEG
  5. ULTRAM [Concomitant]
     Indication: PAIN
     Dosage: 50MG TABLET TAKEN ONCE AS NEEDED FOR EVERY 6 HRS.
  6. NABUMETONE [Concomitant]
     Dosage: 2TAB
  7. METHOTREXATE [Concomitant]
     Dosage: TABS
  8. LEUCOVORIN CALCIUM TABS [Concomitant]
     Dosage: TABS
  9. LISINOPRIL [Concomitant]
     Dosage: TAB
  10. VICODIN [Concomitant]
     Indication: PAIN
     Dosage: 1DF:5-500MG 1TAB Q12 HRS AS NEEDED.

REACTIONS (1)
  - Hypersensitivity [Not Recovered/Not Resolved]
